FAERS Safety Report 9097925 (Version 2)
Quarter: 2013Q1

REPORT INFORMATION
  Report Type: Spontaneous
  Country: AU (occurrence: AU)
  Receive Date: 20130212
  Receipt Date: 20130226
  Transmission Date: 20140127
  Serious: Yes (Hospitalization, Other)
  Sender: FDA-Public Use
  Company Number: AU-BRISTOL-MYERS SQUIBB COMPANY-17364225

PATIENT
  Age: 68 Year
  Sex: Male

DRUGS (9)
  1. METFORMIN HCL [Suspect]
     Indication: DIABETES MELLITUS
     Route: 048
     Dates: start: 20100602
  2. CELECOXIB [Concomitant]
     Route: 048
     Dates: start: 20120428
  3. ESOMEPRAZOLE [Concomitant]
     Route: 048
     Dates: start: 20120515
  4. LIPITOR [Concomitant]
     Route: 048
     Dates: start: 20090904
  5. MICARDIS [Concomitant]
     Route: 048
     Dates: start: 20090227
  6. OXYCONTIN [Concomitant]
     Route: 048
     Dates: start: 20120428
  7. PARACETAMOL [Concomitant]
     Route: 048
     Dates: start: 20120428
  8. VOLTAREN [Concomitant]
     Dates: start: 20111124, end: 20120427
  9. METFORMIN [Concomitant]
     Indication: TYPE 2 DIABETES MELLITUS
     Route: 048
     Dates: start: 20091026, end: 20100602

REACTIONS (2)
  - Bile duct stone [Recovered/Resolved]
  - Liver function test abnormal [Recovered/Resolved]
